FAERS Safety Report 7526851-2 (Version None)
Quarter: 2011Q2

REPORT INFORMATION
  Report Type: 
  Country: None (occurrence: None)
  Receive Date: 20110606
  Receipt Date: 20110413
  Transmission Date: 20111010
  Serious: Yes (Death)
  Sender: FDA-Public Use
  Company Number: US-BAYER-201017829NA

PATIENT
  Age: 56 Year
  Sex: Female
  Weight: 61.364 kg

DRUGS (34)
  1. DIATX [Concomitant]
  2. EPOGEN [Concomitant]
  3. LANTHANUM CARBONATE [Concomitant]
  4. ZEMPLAR [Concomitant]
  5. MAGNEVIST [Suspect]
     Indication: CATHETER PLACEMENT
     Dates: start: 20010417, end: 20010417
  6. GADOLINIUM IN UNSPECIFIED DRUG [Suspect]
     Dosage: UNK
     Dates: start: 19970416
  7. OMNISCAN [Suspect]
     Indication: IMAGING PROCEDURE
  8. PROHANCE [Suspect]
     Indication: IMAGING PROCEDURE
  9. PHOSLO [Concomitant]
  10. ACTIVASE [Concomitant]
  11. OPTIMARK [Suspect]
     Indication: IMAGING PROCEDURE
  12. TOPROL-XL [Concomitant]
  13. CARDIZEM [Concomitant]
  14. MIDODRINE HYDROCHLORIDE [Concomitant]
  15. MULTIHANCE [Suspect]
     Indication: IMAGING PROCEDURE
  16. GADOLINIUM IN UNSPECIFIED DRUG [Suspect]
     Dosage: UNK
     Dates: start: 20061012
  17. GADOLINIUM IN UNSPECIFIED DRUG [Suspect]
     Dosage: UNK
     Dates: start: 20061018
  18. FOSRENOL [Concomitant]
  19. SENSIPAR [Concomitant]
  20. SILDENAFIL CITRATE [Concomitant]
  21. QUINIDINE [Concomitant]
  22. QUININE SULFATE [Concomitant]
  23. MAGNEVIST [Suspect]
     Dates: start: 20061002, end: 20061002
  24. GADOLINIUM IN UNSPECIFIED DRUG [Suspect]
     Dosage: UNK
     Dates: start: 20020802
  25. LABETALOL [Concomitant]
  26. PARICALCITOL [Concomitant]
  27. EPOGEN [Concomitant]
  28. MAGNEVIST [Suspect]
     Indication: NUCLEAR MAGNETIC RESONANCE IMAGING BRAIN
     Dates: start: 20060121, end: 20060121
  29. MAGNEVIST [Suspect]
     Dates: start: 20060629, end: 20060629
  30. DIGOXIN [Concomitant]
  31. GADOLINIUM IN UNSPECIFIED DRUG [Suspect]
     Dosage: UNK
     Dates: start: 20060401
  32. COUMADIN [Concomitant]
  33. PREDNISONE [Concomitant]
  34. AGGRENOX [Concomitant]

REACTIONS (21)
  - NEPHROGENIC SYSTEMIC FIBROSIS [None]
  - SKIN TIGHTNESS [None]
  - SKIN DISCOLOURATION [None]
  - OEDEMA PERIPHERAL [None]
  - EXTREMITY CONTRACTURE [None]
  - SKIN HYPERPIGMENTATION [None]
  - SKIN PLAQUE [None]
  - DEFORMITY [None]
  - SKIN FIBROSIS [None]
  - SKIN HYPERTROPHY [None]
  - PRURITUS GENERALISED [None]
  - JOINT CONTRACTURE [None]
  - SKIN BURNING SENSATION [None]
  - PAIN [None]
  - SKIN ATROPHY [None]
  - JOINT RANGE OF MOTION DECREASED [None]
  - ABASIA [None]
  - SKIN EXFOLIATION [None]
  - ARTHRALGIA [None]
  - PEAU D'ORANGE [None]
  - GENERAL PHYSICAL HEALTH DETERIORATION [None]
